FAERS Safety Report 14751677 (Version 2)
Quarter: 2018Q2

REPORT INFORMATION
  Report Type: Spontaneous
  Country: MY (occurrence: MY)
  Receive Date: 20180412
  Receipt Date: 20180416
  Transmission Date: 20180711
  Serious: Yes (Hospitalization, Other)
  Sender: FDA-Public Use
  Company Number: IND-MY-009507513-1804MYS003790

PATIENT
  Age: 59 Year
  Sex: Male

DRUGS (2)
  1. GABAPENTIN. [Concomitant]
     Active Substance: GABAPENTIN
     Indication: MUSCULOSKELETAL PAIN
     Dosage: 300 MG, QD
  2. ETORICOXIB [Suspect]
     Active Substance: ETORICOXIB
     Indication: MUSCULOSKELETAL PAIN
     Dosage: 90 MG, QD
     Route: 048

REACTIONS (2)
  - Toxic shock syndrome staphylococcal [Unknown]
  - Inflammation masked [Unknown]
